FAERS Safety Report 6121095-3 (Version None)
Quarter: 2009Q1

REPORT INFORMATION
  Report Type: 
  Country: None (occurrence: None)
  Receive Date: 20090312
  Receipt Date: 20090226
  Transmission Date: 20090719
  Serious: Yes (Death, Life-Threatening, Hospitalization)
  Sender: FDA-Public Use
  Company Number: DSA_33293_2009

PATIENT
  Age: 74 Year
  Sex: Male

DRUGS (12)
  1. ENALAPRIL MALEATE [Suspect]
     Indication: RENAL FAILURE
     Dosage: 5 MG BID ORAL
     Route: 048
     Dates: start: 20080101, end: 20080926
  2. INSULIN INJECTION, BIPHASIC [Suspect]
     Indication: TYPE 2 DIABETES MELLITUS
     Dosage: SEE IMAGE
     Route: 058
     Dates: start: 20050101, end: 20080801
  3. INSULIN INJECTION, BIPHASIC [Suspect]
     Indication: TYPE 2 DIABETES MELLITUS
     Dosage: SEE IMAGE
     Route: 058
     Dates: start: 20080801, end: 20080908
  4. INSULIN INJECTION, BIPHASIC [Suspect]
     Indication: TYPE 2 DIABETES MELLITUS
     Dosage: SEE IMAGE
     Route: 058
     Dates: start: 20080908, end: 20080921
  5. INSULIN INJECTION, BIPHASIC [Suspect]
     Indication: TYPE 2 DIABETES MELLITUS
     Dosage: SEE IMAGE
     Route: 058
     Dates: start: 20080923, end: 20080923
  6. INSULIN INJECTION, BIPHASIC [Suspect]
     Indication: TYPE 2 DIABETES MELLITUS
     Dosage: SEE IMAGE
     Route: 058
     Dates: start: 20080925
  7. BISOPROLOL FUMARATE [Suspect]
     Indication: HYPERTENSION
     Dosage: 5 MG QD ORAL
     Route: 048
     Dates: start: 20050101, end: 20080927
  8. ALLOPURINOL [Suspect]
  9. ASPIRIN [Concomitant]
  10. FUROSEMIDE [Suspect]
  11. SIMVASTATIN [Concomitant]
  12. XIPAMIDE [Suspect]

REACTIONS (15)
  - ALCOHOL ABUSE [None]
  - ASTHENIA [None]
  - C-REACTIVE PROTEIN INCREASED [None]
  - CARDIAC ARREST [None]
  - DELIRIUM [None]
  - DIARRHOEA [None]
  - DRUG INTERACTION [None]
  - FALL [None]
  - HYPOGLYCAEMIA [None]
  - LUNG INFILTRATION [None]
  - PULMONARY CONGESTION [None]
  - RENAL FAILURE ACUTE [None]
  - RESTLESSNESS [None]
  - RHABDOMYOLYSIS [None]
  - WITHDRAWAL SYNDROME [None]
